FAERS Safety Report 15673506 (Version 12)
Quarter: 2020Q1

REPORT INFORMATION
  Report Type: Report from Study
  Country: US (occurrence: US)
  Receive Date: 20181129
  Receipt Date: 20200320
  Transmission Date: 20200409
  Serious: Yes (Hospitalization, Other)
  Sender: FDA-Public Use
  Company Number: US-ACTELION-A-US2016-147578

PATIENT
  Age: 70 Year
  Sex: Female
  Weight: 97.51 kg

DRUGS (11)
  1. VELETRI [Suspect]
     Active Substance: EPOPROSTENOL
     Dosage: UNK
     Route: 042
     Dates: start: 20161027
  2. VELETRI [Suspect]
     Active Substance: EPOPROSTENOL
     Dosage: UNK
     Route: 042
  3. VELETRI [Suspect]
     Active Substance: EPOPROSTENOL
     Dosage: UNK
     Route: 042
  4. ADCIRCA [Suspect]
     Active Substance: TADALAFIL
     Indication: PRODUCT USED FOR UNKNOWN INDICATION
     Dosage: UNK
     Route: 065
  5. DILTIAZEM. [Concomitant]
     Active Substance: DILTIAZEM
  6. ADEMPAS [Suspect]
     Active Substance: RIOCIGUAT
     Indication: PRODUCT USED FOR UNKNOWN INDICATION
     Route: 065
  7. REVATIO [Concomitant]
     Active Substance: SILDENAFIL CITRATE
  8. VELETRI [Suspect]
     Active Substance: EPOPROSTENOL
     Indication: PULMONARY ARTERIAL HYPERTENSION
     Dosage: 18 NG/KG, PER MIN
     Route: 042
  9. VELETRI [Suspect]
     Active Substance: EPOPROSTENOL
     Dosage: UNK
     Route: 042
  10. VELETRI [Suspect]
     Active Substance: EPOPROSTENOL
     Dosage: 18 NG/KG, PER MIN
     Route: 042
  11. WARFARIN [Concomitant]
     Active Substance: WARFARIN

REACTIONS (58)
  - Decreased appetite [Not Recovered/Not Resolved]
  - Vomiting [Unknown]
  - Product dose omission [Unknown]
  - Abdominal distension [Unknown]
  - Asthenia [Unknown]
  - Diarrhoea [Not Recovered/Not Resolved]
  - Chest pain [Unknown]
  - Vertigo [Unknown]
  - Abdominal discomfort [Unknown]
  - Pancreatitis [Unknown]
  - Back pain [Unknown]
  - Pyrexia [Unknown]
  - Oropharyngeal pain [Unknown]
  - Skin laceration [Unknown]
  - Sarcoidosis [Not Recovered/Not Resolved]
  - Fatigue [Unknown]
  - Hordeolum [Unknown]
  - Abdominal pain upper [Unknown]
  - Diverticulum [Unknown]
  - Insomnia [Not Recovered/Not Resolved]
  - Portal hypertension [Unknown]
  - Arthralgia [Not Recovered/Not Resolved]
  - Eye operation [Unknown]
  - Platelet count decreased [Not Recovered/Not Resolved]
  - Fungal infection [Unknown]
  - Eye haemorrhage [Unknown]
  - Fluid retention [Unknown]
  - Procedural pain [Unknown]
  - Heart rate increased [Unknown]
  - Nausea [Not Recovered/Not Resolved]
  - Malaise [Not Recovered/Not Resolved]
  - Magnetic resonance imaging [Unknown]
  - Dyspnoea [Not Recovered/Not Resolved]
  - Pain in extremity [Unknown]
  - Tremor [Unknown]
  - Urinary tract infection [Unknown]
  - Retinal injury [Unknown]
  - Flushing [Unknown]
  - Device leakage [Unknown]
  - Dyspnoea exertional [Not Recovered/Not Resolved]
  - Musculoskeletal chest pain [Unknown]
  - Hiatus hernia [Unknown]
  - Transfusion [Unknown]
  - Oral mucosal erythema [Unknown]
  - Tooth fracture [Unknown]
  - Blood pressure increased [Unknown]
  - Condition aggravated [Unknown]
  - Bone pain [Not Recovered/Not Resolved]
  - Hospitalisation [Unknown]
  - Epistaxis [Unknown]
  - Tooth extraction [Unknown]
  - Headache [Not Recovered/Not Resolved]
  - Weight increased [Unknown]
  - Pain [Unknown]
  - Vision blurred [Unknown]
  - Myalgia [Not Recovered/Not Resolved]
  - Hypoacusis [Unknown]
  - Dizziness [Unknown]

NARRATIVE: CASE EVENT DATE: 20161124
